FAERS Safety Report 5199662-3 (Version None)
Quarter: 2007Q1

REPORT INFORMATION
  Report Type: 
  Country: None (occurrence: None)
  Receive Date: 20070103
  Receipt Date: 20070103
  Transmission Date: 20070707
  Serious: Yes (Hospitalization)
  Sender: FDA-Public Use
  Company Number: None

PATIENT
  Age: 52 Year
  Sex: Female

DRUGS (4)
  1. CISPLATIN [Suspect]
     Indication: CERVIX CARCINOMA
     Dosage: 60MG  Q WEEK
     Dates: start: 20051228, end: 20060105
  2. LISINOPRIL [Concomitant]
  3. ATIVAN [Concomitant]
  4. LIPITOR [Concomitant]

REACTIONS (1)
  - RENAL FAILURE ACUTE [None]
